FAERS Safety Report 5567571-3 (Version None)
Quarter: 2007Q4

REPORT INFORMATION
  Report Type: 
  Country: None (occurrence: None)
  Receive Date: 20071219
  Receipt Date: 20071210
  Transmission Date: 20080405
  Serious: Yes (Other)
  Sender: FDA-Public Use
  Company Number: US-PFIZER INC-2007052396

PATIENT
  Sex: Male

DRUGS (3)
  1. NEURONTIN [Suspect]
     Indication: DIABETIC NEUROPATHY
  2. LYRICA [Suspect]
     Indication: DIABETIC NEUROPATHY
  3. GABAPENTIN [Suspect]

REACTIONS (6)
  - ABNORMAL DREAMS [None]
  - CONSTIPATION [None]
  - INCONTINENCE [None]
  - MOOD SWINGS [None]
  - PROSTATE CANCER [None]
  - VISION BLURRED [None]
